FAERS Safety Report 8021131-3 (Version None)
Quarter: 2011Q4

REPORT INFORMATION
  Report Type: 
  Country: None (occurrence: None)
  Receive Date: 20111229
  Receipt Date: 20111219
  Transmission Date: 20120403
  Serious: Yes (Life-Threatening)
  Sender: FDA-Public Use
  Company Number: 2011-4858

PATIENT
  Age: 40 Year
  Sex: Female
  Weight: 52 kg

DRUGS (6)
  1. BOTULINUM TOXIN TYPE A [Suspect]
     Indication: SKIN WRINKLING
     Dosage: 60;90  UNITS (60 UNITS, SINGLE CYCLE), INTRAMUSCULAR
     Route: 030
     Dates: start: 20110630, end: 20110630
  2. BOTULINUM TOXIN TYPE A [Suspect]
     Indication: OFF LABEL USE
     Dosage: 60;90  UNITS (60 UNITS, SINGLE CYCLE), INTRAMUSCULAR
     Route: 030
     Dates: start: 20110630, end: 20110630
  3. BOTULINUM TOXIN TYPE A [Suspect]
     Indication: SKIN WRINKLING
     Dosage: 60;90  UNITS (60 UNITS, SINGLE CYCLE), INTRAMUSCULAR
     Route: 030
     Dates: start: 20111005, end: 20111005
  4. BOTULINUM TOXIN TYPE A [Suspect]
     Indication: OFF LABEL USE
     Dosage: 60;90  UNITS (60 UNITS, SINGLE CYCLE), INTRAMUSCULAR
     Route: 030
     Dates: start: 20111005, end: 20111005
  5. CERAZETTE (DESOGESTREL) [Concomitant]
  6. BOTULINUM TOXIN TYPE A [Suspect]

REACTIONS (3)
  - FEAR OF DEATH [None]
  - ARRHYTHMIA [None]
  - CONDITION AGGRAVATED [None]
